FAERS Safety Report 10623635 (Version 6)
Quarter: 2015Q3

REPORT INFORMATION
  Report Type: Spontaneous
  Country: US (occurrence: US)
  Receive Date: 20141203
  Receipt Date: 20150910
  Transmission Date: 20151125
  Serious: Yes (Death, Hospitalization, Other)
  Sender: FDA-Public Use
  Company Number: US-PFIZER INC-2014330603

PATIENT
  Age: 47 Year
  Sex: Female

DRUGS (1)
  1. CHANTIX [Suspect]
     Active Substance: VARENICLINE TARTRATE
     Indication: SMOKING CESSATION THERAPY
     Dosage: UNK
     Dates: start: 200907, end: 2009

REACTIONS (8)
  - Completed suicide [Fatal]
  - Abdominal pain upper [Unknown]
  - Asthenia [Unknown]
  - Depression [Unknown]
  - Personality change [Unknown]
  - Somnambulism [Unknown]
  - Amnesia [Unknown]
  - Nightmare [Unknown]

NARRATIVE: CASE EVENT DATE: 2009
